FAERS Safety Report 8174173-1 (Version None)
Quarter: 2012Q1

REPORT INFORMATION
  Report Type: 
  Country: None (occurrence: None)
  Receive Date: 20120227
  Receipt Date: 20120214
  Transmission Date: 20120608
  Serious: Yes (Other)
  Sender: FDA-Public Use
  Company Number: 2012P1004946

PATIENT
  Age: 41 Year
  Sex: Female
  Weight: 98 kg

DRUGS (4)
  1. METHYLPREDNISOLONE 4MG TAB [Suspect]
     Dosage: 6 TABLETS;QD;PO
     Route: 048
     Dates: start: 20120213
  2. METHYLPREDNISOLONE 4MG TAB [Suspect]
     Dosage: 6 TABLETS;QD;PO
     Route: 048
     Dates: start: 20120101
  3. MULTI-VITAMIN [Concomitant]
  4. CHLORZOXAZONE [Concomitant]

REACTIONS (6)
  - JOINT DISLOCATION [None]
  - DYSPNOEA [None]
  - DRY MOUTH [None]
  - FUNGAL INFECTION [None]
  - DRY SKIN [None]
  - TINNITUS [None]
